FAERS Safety Report 15894377 (Version 2)
Quarter: 2019Q1

REPORT INFORMATION
  Report Type: Spontaneous
  Country: PL (occurrence: PL)
  Receive Date: 20190131
  Receipt Date: 20190216
  Transmission Date: 20190417
  Serious: Yes (Other)
  Sender: FDA-Public Use
  Company Number: PL-ACCORD-104110

PATIENT
  Age: 74 Year
  Sex: Female

DRUGS (8)
  1. PREDNISONE. [Concomitant]
     Active Substance: PREDNISONE
     Dosage: ALSO RECEIVED 20MG, 30MG DAILY FROM UNKNOWN DATE
     Route: 065
  2. POTASSIUM CHLORIDE. [Concomitant]
     Active Substance: POTASSIUM CHLORIDE
     Route: 065
  3. PEMETREXED. [Suspect]
     Active Substance: PEMETREXED
     Indication: METASTASES TO LUNG
     Route: 065
     Dates: start: 201705
  4. OMEPRAZOLE. [Suspect]
     Active Substance: OMEPRAZOLE
     Indication: PRODUCT USED FOR UNKNOWN INDICATION
     Route: 065
  5. TIMONACIC/TIMONACIC ARGININE [Concomitant]
     Route: 065
  6. GEMCITABINE/GEMCITABINE HYDROCHLORIDE [Suspect]
     Active Substance: GEMCITABINE\GEMCITABINE HYDROCHLORIDE
     Indication: METASTASES TO LUNG
     Route: 065
  7. TAMOXIFEN [Suspect]
     Active Substance: TAMOXIFEN
     Indication: BREAST CANCER FEMALE
     Route: 048
  8. NADROPARIN [Concomitant]
     Active Substance: NADROPARIN
     Route: 065

REACTIONS (6)
  - Cushingoid [Unknown]
  - Malignant neoplasm progression [Unknown]
  - Subacute cutaneous lupus erythematosus [Unknown]
  - Disease progression [None]
  - Disease recurrence [Recovering/Resolving]
  - Lupus-like syndrome [Recovered/Resolved with Sequelae]
